FAERS Safety Report 11467582 (Version 2)
Quarter: 2015Q3

REPORT INFORMATION
  Report Type: Report from Study
  Country: DE (occurrence: DE)
  Receive Date: 20150908
  Receipt Date: 20150924
  Transmission Date: 20151125
  Serious: Yes (Life-Threatening, Other)
  Sender: FDA-Public Use
  Company Number: PHHO2015DE013727

PATIENT
  Age: 11 Year
  Sex: Male
  Weight: 50 kg

DRUGS (4)
  1. LDK378 [Suspect]
     Active Substance: CERITINIB
     Indication: ANAPLASTIC LARGE-CELL LYMPHOMA
     Dosage: 750 MG, UNK
     Route: 048
     Dates: start: 20150821, end: 20150831
  2. VINDESINE [Suspect]
     Active Substance: VINDESINE
     Indication: LYMPHOMA
     Dosage: UNK
     Route: 065
     Dates: start: 20150916, end: 20150917
  3. CYTARABINE. [Suspect]
     Active Substance: CYTARABINE
     Indication: LYMPHOMA
     Dosage: UNK
     Route: 065
     Dates: start: 20150916, end: 20150917
  4. DEXAMETHASONE. [Suspect]
     Active Substance: DEXAMETHASONE
     Indication: LYMPHOMA
     Dosage: UNK
     Route: 065
     Dates: start: 20150916, end: 20150917

REACTIONS (2)
  - Subileus [Not Recovered/Not Resolved]
  - Sepsis [Unknown]

NARRATIVE: CASE EVENT DATE: 20150829
